FAERS Safety Report 12799812 (Version 2)
Quarter: 2016Q4

REPORT INFORMATION
  Report Type: Report from Study
  Country: US (occurrence: US)
  Receive Date: 20160930
  Receipt Date: 20161024
  Transmission Date: 20170207
  Serious: No
  Sender: FDA-Public Use
  Company Number: US-AMGEN-USASL2016131121

PATIENT
  Age: 29 Year
  Sex: Female

DRUGS (2)
  1. ENBREL [Suspect]
     Active Substance: ETANERCEPT
     Indication: ANKYLOSING SPONDYLITIS
  2. ENBREL [Suspect]
     Active Substance: ETANERCEPT
     Indication: RHEUMATOID ARTHRITIS
     Dosage: 50 MG, QWK
     Route: 065

REACTIONS (10)
  - Injection site swelling [Recovered/Resolved]
  - Bone disorder [Unknown]
  - Arthralgia [Recovering/Resolving]
  - Injection site pain [Recovered/Resolved]
  - Polymenorrhoea [Unknown]
  - Pelvic pain [Unknown]
  - Musculoskeletal stiffness [Recovering/Resolving]
  - Injection site erythema [Recovered/Resolved]
  - Groin pain [Unknown]
  - Spinal pain [Unknown]

NARRATIVE: CASE EVENT DATE: 2016
